FAERS Safety Report 21351834 (Version 2)
Quarter: 2022Q3

REPORT INFORMATION
  Report Type: Spontaneous
  Country: DE (occurrence: DE)
  Receive Date: 20220919
  Receipt Date: 20220929
  Transmission Date: 20221026
  Serious: Yes (Life-Threatening)
  Sender: FDA-Public Use
  Company Number: DE-PFIZER INC-202201152843

PATIENT
  Age: 79 Year
  Sex: Female

DRUGS (6)
  1. GENTAMICIN [Suspect]
     Active Substance: GENTAMICIN
     Indication: Anti-infective therapy
     Dosage: UNK
     Route: 065
     Dates: start: 2022
  2. LINEZOLID [Suspect]
     Active Substance: LINEZOLID
     Indication: Anti-infective therapy
     Dosage: UNK
     Route: 065
     Dates: start: 2022
  3. MEROPENEM [Suspect]
     Active Substance: MEROPENEM
     Indication: Anti-infective therapy
     Dosage: UNK
     Route: 065
     Dates: start: 2022
  4. AMPICILLIN [Suspect]
     Active Substance: AMPICILLIN
     Indication: Anti-infective therapy
     Dosage: UNK
     Route: 065
     Dates: start: 2022
  5. COLISTIN [Suspect]
     Active Substance: COLISTIN
     Indication: Anti-infective therapy
     Dosage: UNK
     Route: 065
     Dates: start: 2022
  6. CEFIDEROCOL [Suspect]
     Active Substance: CEFIDEROCOL
     Indication: Anti-infective therapy
     Dosage: UNK
     Route: 065
     Dates: start: 2022

REACTIONS (1)
  - Therapy non-responder [Unknown]
